FAERS Safety Report 23077496 (Version 2)
Quarter: 2024Q1

REPORT INFORMATION
  Report Type: Spontaneous
  Country: GB (occurrence: GB)
  Receive Date: 20231018
  Receipt Date: 20240312
  Transmission Date: 20240410
  Serious: Yes (Hospitalization)
  Sender: FDA-Public Use
  Company Number: None

PATIENT
  Age: 41 Year
  Sex: Male
  Weight: 80 kg

DRUGS (2)
  1. OLANZAPINE PAMOATE [Suspect]
     Active Substance: OLANZAPINE PAMOATE
     Indication: Schizophrenia
     Dates: start: 20220504, end: 20220805
  2. OLANZAPINE PAMOATE [Suspect]
     Active Substance: OLANZAPINE PAMOATE
     Indication: Schizophrenia
     Dosage: HE INJECTED OLANZAPINE INTO HIS ARM INSTEAD OF BUTTOCK
     Dates: start: 20220804

REACTIONS (2)
  - Immediate post-injection reaction [Recovered/Resolved with Sequelae]
  - Product administration error [Unknown]

NARRATIVE: CASE EVENT DATE: 20220804
